FAERS Safety Report 22152636 (Version 1)
Quarter: 2023Q1

REPORT INFORMATION
  Report Type: Spontaneous
  Country: US (occurrence: US)
  Receive Date: 20230329
  Receipt Date: 20230329
  Transmission Date: 20230418
  Serious: No
  Sender: FDA-Public Use
  Company Number: US-NOVAST LABORATORIES INC.-2022NOV000013

PATIENT

DRUGS (1)
  1. METOPROLOL SUCCINATE [Suspect]
     Active Substance: METOPROLOL SUCCINATE
     Indication: Atrial fibrillation
     Dosage: 100 MILLIGRAM
     Route: 065

REACTIONS (9)
  - Chest discomfort [Unknown]
  - Abdominal discomfort [Unknown]
  - Dyspnoea [Unknown]
  - Anxiety [Unknown]
  - Headache [Unknown]
  - Dizziness [Unknown]
  - Palpitations [Unknown]
  - Fatigue [Unknown]
  - Product use in unapproved indication [Unknown]
